FAERS Safety Report 9262479 (Version 1)
Quarter: 2013Q2

REPORT INFORMATION
  Report Type: Spontaneous
  Country: US (occurrence: US)
  Receive Date: 20130430
  Receipt Date: 20130430
  Transmission Date: 20140414
  Serious: Yes (Other)
  Sender: FDA-Public Use
  Company Number: US-ELI_LILLY_AND_COMPANY-US201304005944

PATIENT
  Age: 53 Year
  Sex: Male

DRUGS (2)
  1. ZYPREXA RELPREVV [Suspect]
     Indication: SCHIZOPHRENIA, PARANOID TYPE
     Dosage: 300 MG, EVERY TWO WEEKS
     Dates: start: 20130404
  2. OLANZAPINE [Concomitant]
     Route: 048

REACTIONS (3)
  - International normalised ratio increased [Unknown]
  - Blister [Unknown]
  - Blister [Unknown]
